FAERS Safety Report 10608703 (Version 2)
Quarter: 2014Q4

REPORT INFORMATION
  Report Type: Spontaneous
  Country: DE (occurrence: DE)
  Receive Date: 20141125
  Receipt Date: 20141231
  Transmission Date: 20150529
  Serious: Yes (Congenital Anomaly, Other)
  Sender: FDA-Public Use
  Company Number: DE-PFIZER INC-2014319149

PATIENT
  Sex: Female

DRUGS (3)
  1. VENLAFAXINE HCL [Suspect]
     Active Substance: VENLAFAXINE HYDROCHLORIDE
     Indication: ANXIETY DISORDER
     Dosage: 150 MG, 1X/DAY, (FROM 0 - 8. GESTATIONAL WEEK)
     Route: 064
  2. SERTRALINE HCL [Suspect]
     Active Substance: SERTRALINE HYDROCHLORIDE
     Indication: DEPRESSION
     Dosage: 25 MG, 1X/DAY, (FROM 17. TO 35.5. GESTATIONAL WEEK)
     Route: 064
     Dates: start: 20131010, end: 20140218
  3. FEMIBION [Concomitant]
     Active Substance: VITAMINS
     Indication: PROPHYLAXIS OF NEURAL TUBE DEFECT
     Dosage: FROM 6.2. - 35.5. GESTATIONAL WEEK
     Route: 064
     Dates: start: 20130727, end: 20140218

REACTIONS (5)
  - Haemangioma [Not Recovered/Not Resolved]
  - Intraventricular haemorrhage [Not Recovered/Not Resolved]
  - Maternal exposure during pregnancy [Not Recovered/Not Resolved]
  - Congenital hydrocephalus [Unknown]
  - Premature baby [Unknown]

NARRATIVE: CASE EVENT DATE: 20140218
